FAERS Safety Report 8363435-0 (Version None)
Quarter: 2012Q2

REPORT INFORMATION
  Report Type: 
  Country: None (occurrence: None)
  Receive Date: 20120516
  Receipt Date: 20120510
  Transmission Date: 20120825
  Serious: Yes (Other)
  Sender: FDA-Public Use
  Company Number: US-PFIZER INC-2012115269

PATIENT
  Sex: Female

DRUGS (1)
  1. FLECTOR [Suspect]
     Indication: SPINAL PAIN
     Dosage: UNSPECIFIED DOSE; DAILY
     Route: 062

REACTIONS (1)
  - GALLBLADDER DISORDER [None]
